FAERS Safety Report 19225950 (Version 2)
Quarter: 2021Q3

REPORT INFORMATION
  Report Type: Spontaneous
  Country: US (occurrence: US)
  Receive Date: 20210506
  Receipt Date: 20210802
  Transmission Date: 20211014
  Serious: Yes (Other)
  Sender: FDA-Public Use
  Company Number: US-TEVA-2021-US-1907239

PATIENT
  Age: 52 Year
  Sex: Male

DRUGS (10)
  1. RIFABUTIN. [Suspect]
     Active Substance: RIFABUTIN
     Indication: MEDIASTINITIS
  2. CLOFAZIMINE [Suspect]
     Active Substance: CLOFAZIMINE
     Indication: MYCOBACTERIAL INFECTION
     Route: 048
  3. AMIKACIN. [Suspect]
     Active Substance: AMIKACIN
     Indication: MEDIASTINITIS
  4. AZITHROMYCIN ANHYDROUS. [Suspect]
     Active Substance: AZITHROMYCIN ANHYDROUS
     Indication: MEDIASTINITIS
  5. RIFABUTIN. [Suspect]
     Active Substance: RIFABUTIN
     Indication: MYCOBACTERIAL INFECTION
     Route: 048
  6. AMIKACIN. [Suspect]
     Active Substance: AMIKACIN
     Indication: MYCOBACTERIAL INFECTION
     Route: 048
  7. AZITHROMYCIN ANHYDROUS. [Suspect]
     Active Substance: AZITHROMYCIN ANHYDROUS
     Indication: MYCOBACTERIAL INFECTION
     Route: 048
  8. ETHAMBUTOL [Suspect]
     Active Substance: ETHAMBUTOL HYDROCHLORIDE
     Indication: MYCOBACTERIAL INFECTION
     Route: 048
  9. ETHAMBUTOL [Suspect]
     Active Substance: ETHAMBUTOL HYDROCHLORIDE
     Indication: MEDIASTINITIS
  10. CLOFAZIMINE [Suspect]
     Active Substance: CLOFAZIMINE
     Indication: MEDIASTINITIS

REACTIONS (3)
  - Immune reconstitution inflammatory syndrome [Recovered/Resolved]
  - Toxicity to various agents [Recovered/Resolved]
  - Visual impairment [Recovered/Resolved]
